FAERS Safety Report 4618745-7 (Version None)
Quarter: 2005Q1

REPORT INFORMATION
  Report Type: 
  Country: None (occurrence: None)
  Receive Date: 20050323
  Receipt Date: 20050308
  Transmission Date: 20050727
  Serious: Yes (Hospitalization)
  Sender: FDA-Public Use
  Company Number: 2005BI002564

PATIENT
  Age: 46 Year
  Sex: Female
  Weight: 81.6475 kg

DRUGS (11)
  1. AVONEX [Suspect]
     Indication: MULTIPLE SCLEROSIS
     Dosage: 30 UG;QW; IM
     Route: 030
     Dates: start: 20021221, end: 20050111
  2. AVONEX [Suspect]
     Indication: MULTIPLE SCLEROSIS
     Dosage: 30 UG;QW; IM
     Route: 030
     Dates: start: 20021221, end: 20050111
  3. METHADONE HCL [Concomitant]
  4. SOMA [Concomitant]
  5. ACIPHELX [Concomitant]
  6. ZELNORM [Concomitant]
  7. GLUCOPHAGE [Concomitant]
  8. MONOPRIL [Concomitant]
  9. EFFEXOR [Concomitant]
  10. MOM [Concomitant]
  11. TYLENOL (CAPLET) [Concomitant]

REACTIONS (12)
  - ALOPECIA [None]
  - AMNESIA [None]
  - CHEST WALL PAIN [None]
  - CHOLELITHIASIS [None]
  - FIBROMYALGIA [None]
  - GALLBLADDER DISORDER [None]
  - GASTROENTERITIS [None]
  - HIATUS HERNIA [None]
  - INFLUENZA LIKE ILLNESS [None]
  - MUSCLE RIGIDITY [None]
  - PAIN [None]
  - WEIGHT DECREASED [None]
